FAERS Safety Report 15288036 (Version 1)
Quarter: 2018Q4

REPORT INFORMATION
  Report Type: Spontaneous
  Country: FR (occurrence: FR)
  Receive Date: 20180817
  Receipt Date: 20180817
  Transmission Date: 20190204
  Serious: Yes (Hospitalization, Congenital Anomaly)
  Sender: FDA-Public Use
  Company Number: FR-TEVA-2018-FR-942180

PATIENT
  Age: 26 Year
  Sex: Male
  Weight: 79 kg

DRUGS (3)
  1. MOMETASONE (FUROATE DE) [Suspect]
     Active Substance: MOMETASONE FUROATE
     Indication: NASOPHARYNGITIS
     Dosage: UNSPECIFIED
     Route: 045
     Dates: start: 201806
  2. TUSSIDANE [Suspect]
     Active Substance: DEXTROMETHORPHAN HYDROBROMIDE
     Indication: NASOPHARYNGITIS
     Dosage: UNSPECIFIED
     Route: 048
     Dates: start: 201806
  3. AMOXICILLINE [Suspect]
     Active Substance: AMOXICILLIN
     Indication: NASOPHARYNGITIS
     Dosage: UNSPECIFIED
     Route: 048
     Dates: start: 201806

REACTIONS (2)
  - Condition aggravated [Recovered/Resolved]
  - Maple syrup disease [Recovered/Resolved]

NARRATIVE: CASE EVENT DATE: 20180701
